FAERS Safety Report 7007611-8 (Version None)
Quarter: 2010Q3

REPORT INFORMATION
  Report Type: 
  Country: None (occurrence: None)
  Receive Date: 20100917
  Receipt Date: 20100907
  Transmission Date: 20110219
  Serious: Yes (Death, Other)
  Sender: FDA-Public Use
  Company Number: 2010113294

PATIENT
  Sex: Male

DRUGS (1)
  1. FRAGMIN [Suspect]
     Dosage: SUBCUTANEOUS
     Route: 058

REACTIONS (1)
  - CEREBROVASCULAR ACCIDENT [None]
